FAERS Safety Report 22196621 (Version 1)
Quarter: 2023Q2

REPORT INFORMATION
  Report Type: Spontaneous
  Country: US (occurrence: None)
  Receive Date: 20230410
  Receipt Date: 20230410
  Transmission Date: 20230722
  Serious: Yes (Other)
  Sender: FDA-Public Use
  Company Number: None

PATIENT
  Age: 41 Year
  Weight: 83.25 kg

DRUGS (4)
  1. BUPRENORPHINE [Suspect]
     Active Substance: BUPRENORPHINE
     Indication: Drug dependence
     Dosage: 54 TABLETS TWICE A DAY SUBLINGUAL? ?
     Route: 060
  2. BUPRENORPHINE [Concomitant]
     Active Substance: BUPRENORPHINE
  3. GABAPENTIN [Concomitant]
     Active Substance: GABAPENTIN
  4. SEROQUEL [Concomitant]
     Active Substance: QUETIAPINE FUMARATE

REACTIONS (1)
  - Dental caries [None]

NARRATIVE: CASE EVENT DATE: 20120303
